FAERS Safety Report 8418484-0 (Version None)
Quarter: 2012Q2

REPORT INFORMATION
  Report Type: 
  Country: None (occurrence: None)
  Receive Date: 20120607
  Receipt Date: 20120524
  Transmission Date: 20120825
  Serious: Yes (Death, Other)
  Sender: FDA-Public Use
  Company Number: US-CELGENEUS-083-21880-12053039

PATIENT

DRUGS (1)
  1. REVLIMID [Suspect]
     Indication: LYMPHOMA
     Dosage: 30 MILLIGRAM
     Route: 048
     Dates: start: 20101027, end: 20101210

REACTIONS (2)
  - DEATH [None]
  - SEPSIS [None]
